FAERS Safety Report 21436750 (Version 1)
Quarter: 2022Q4

REPORT INFORMATION
  Report Type: Spontaneous
  Country: IT (occurrence: IT)
  Receive Date: 20221010
  Receipt Date: 20221010
  Transmission Date: 20230112
  Serious: Yes (Other)
  Sender: FDA-Public Use
  Company Number: None

PATIENT
  Age: 70 Year
  Sex: Female
  Weight: 100 kg

DRUGS (1)
  1. PALBOCICLIB [Suspect]
     Active Substance: PALBOCICLIB
     Indication: Breast cancer stage IV
     Dosage: GG1-21 Q 28 P.OS
     Route: 048
     Dates: start: 20200430

REACTIONS (1)
  - Cyclic neutropenia [Recovered/Resolved]

NARRATIVE: CASE EVENT DATE: 20220408
